FAERS Safety Report 4345372-1 (Version None)
Quarter: 2004Q2

REPORT INFORMATION
  Report Type: 
  Country: None (occurrence: None)
  Receive Date: 20040420
  Receipt Date: 20040413
  Transmission Date: 20050107
  Serious: No
  Sender: FDA-Public Use
  Company Number: 2004203085US

PATIENT
  Age: 68 Year
  Sex: Female
  Weight: 81.6 kg

DRUGS (4)
  1. CELEBREX [Suspect]
     Indication: ARTHRITIS
     Dates: end: 20040303
  2. LIPITOR [Concomitant]
  3. LOPRESSOR [Concomitant]
  4. NORVASC [Concomitant]

REACTIONS (2)
  - HEART RATE INCREASED [None]
  - IRON DEFICIENCY ANAEMIA [None]
